FAERS Safety Report 12660389 (Version 1)
Quarter: 2016Q3

REPORT INFORMATION
  Report Type: Spontaneous
  Country: US (occurrence: US)
  Receive Date: 20160817
  Receipt Date: 20160817
  Transmission Date: 20161109
  Serious: Yes (Hospitalization)
  Sender: FDA-Public Use
  Company Number: US-FRESENIUS KABI-FK201605428

PATIENT
  Age: 68 Year
  Sex: Female

DRUGS (8)
  1. ACE INHIBITOR [Concomitant]
     Active Substance: UNSPECIFIED INGREDIENT
     Indication: HYPERTENSION
  2. ETOPOSIDE (MANUFACTURER UNKNOWN) [Suspect]
     Active Substance: ETOPOSIDE
     Indication: PANCREATIC CARCINOMA
     Route: 065
  3. DEXAMETHASONE. [Concomitant]
     Active Substance: DEXAMETHASONE
  4. DEXAMETHASONE. [Concomitant]
     Active Substance: DEXAMETHASONE
  5. ANTIHISTAMINES [Concomitant]
     Active Substance: ANTIHISTAMINES NOS
  6. CARBOPLATIN (MANUFACTURER UNKNOWN) [Suspect]
     Active Substance: CARBOPLATIN
     Indication: PANCREATIC CARCINOMA
     Route: 065
  7. HYDROCHLOROTHIAZIDE. [Concomitant]
     Active Substance: HYDROCHLOROTHIAZIDE
     Indication: HYPERTENSION
  8. PREDNISONE. [Concomitant]
     Active Substance: PREDNISONE

REACTIONS (2)
  - Renal failure [Unknown]
  - Tumour lysis syndrome [Unknown]
